FAERS Safety Report 24227124 (Version 2)
Quarter: 2024Q4

REPORT INFORMATION
  Report Type: Spontaneous
  Country: JP (occurrence: None)
  Receive Date: 20240820
  Receipt Date: 20241009
  Transmission Date: 20250114
  Serious: Yes (Hospitalization, Other)
  Sender: UNICHEM
  Company Number: JP-Unichem Pharmaceuticals (USA) Inc-UCM202408-001029

PATIENT
  Age: 57 Year
  Sex: Female

DRUGS (9)
  1. QUETIAPINE [Suspect]
     Active Substance: QUETIAPINE
     Indication: Depression
     Dosage: HALF A TABLET
  2. TRAZODONE [Suspect]
     Active Substance: TRAZODONE HYDROCHLORIDE
     Indication: Depression
     Dosage: 2 TABLETS
  3. RISPERIDONE [Suspect]
     Active Substance: RISPERIDONE
     Indication: Depression
     Dosage: 2 TABLETS
  4. PAROXETINE [Suspect]
     Active Substance: PAROXETINE
     Indication: Depression
     Dosage: 1 TABLETS
  5. ROCURONIUM [Concomitant]
     Active Substance: ROCURONIUM BROMIDE
     Indication: Endotracheal intubation
  6. MIDAZOLAM [Concomitant]
     Active Substance: MIDAZOLAM
     Indication: Endotracheal intubation
  7. DIAZEPAM [Concomitant]
     Active Substance: DIAZEPAM
     Indication: Product used for unknown indication
     Dosage: UNKNOWN
  8. PALIPERIDONE [Concomitant]
     Active Substance: PALIPERIDONE
     Indication: Product used for unknown indication
     Dosage: UNKNOWN
  9. ZOLPIDEM [Concomitant]
     Active Substance: ZOLPIDEM TARTRATE
     Indication: Product used for unknown indication
     Dosage: UNKNOWN

REACTIONS (8)
  - Altered state of consciousness [Recovered/Resolved]
  - Bezoar [Unknown]
  - Pneumonia aspiration [Recovered/Resolved]
  - Drug level increased [Unknown]
  - Hypotension [Recovered/Resolved]
  - Tachycardia [Recovered/Resolved]
  - Overdose [Unknown]
  - Wrong technique in product usage process [Unknown]
